FAERS Safety Report 15188608 (Version 5)
Quarter: 2019Q2

REPORT INFORMATION
  Report Type: Spontaneous
  Country: US (occurrence: US)
  Receive Date: 20180724
  Receipt Date: 20190411
  Transmission Date: 20190711
  Serious: No
  Sender: FDA-Public Use
  Company Number: US-PFIZER INC-2018297422

PATIENT
  Age: 66 Year
  Sex: Female

DRUGS (1)
  1. GABAPENTIN. [Suspect]
     Active Substance: GABAPENTIN
     Indication: OROPHARYNGEAL PAIN
     Dosage: UNK
     Route: 048
     Dates: start: 20130716, end: 20130717

REACTIONS (2)
  - Product use in unapproved indication [Unknown]
  - Drug hypersensitivity [Unknown]

NARRATIVE: CASE EVENT DATE: 20130716
